FAERS Safety Report 4360171-2 (Version None)
Quarter: 2004Q2

REPORT INFORMATION
  Report Type: 
  Country: None (occurrence: None)
  Receive Date: 20040513
  Receipt Date: 20040503
  Transmission Date: 20050107
  Serious: Yes (Hospitalization)
  Sender: FDA-Public Use
  Company Number: US-JNJFOC-20040200139

PATIENT
  Age: 44 Year
  Sex: Female
  Weight: 46.2669 kg

DRUGS (4)
  1. INFLIXIMAB (INFLIXIMAB, RECOMBINANT) LYOPHILIZED POWDER [Suspect]
     Indication: CROHN'S DISEASE
     Dosage: 5 MG/KG, INTRAVENOUS
     Route: 042
     Dates: start: 20020729
  2. AZATHIOPRINE [Concomitant]
  3. NARCOTIC ANALGESICS (ANALGESICS) [Concomitant]
  4. ANTIDEPRESSANTS (ANTIDEPRESSANTS) [Concomitant]

REACTIONS (8)
  - ADHESION [None]
  - ADNEXA UTERI MASS [None]
  - HYPOKALAEMIA [None]
  - HYPOMAGNESAEMIA [None]
  - LEIOMYOSARCOMA [None]
  - MUSCLE CRAMP [None]
  - PANCREATITIS [None]
  - PERITONEAL CYST [None]
